FAERS Safety Report 12170203 (Version 2)
Quarter: 2016Q1

REPORT INFORMATION
  Report Type: Report from Study
  Country: US (occurrence: US)
  Receive Date: 20160311
  Receipt Date: 20160321
  Transmission Date: 20160526
  Serious: Yes (Other)
  Sender: FDA-Public Use
  Company Number: US-AMGEN-USASL2016027460

PATIENT
  Age: 50 Year
  Sex: Female

DRUGS (1)
  1. ENBREL [Suspect]
     Active Substance: ETANERCEPT
     Indication: PSORIASIS
     Dosage: 50 MG, QWK
     Route: 065
     Dates: start: 20080101

REACTIONS (7)
  - Guttate psoriasis [Unknown]
  - Fatigue [Unknown]
  - Malaise [Unknown]
  - Psoriasis [Not Recovered/Not Resolved]
  - Pharyngitis streptococcal [Unknown]
  - Tooth abscess [Unknown]
  - Infection [Unknown]

NARRATIVE: CASE EVENT DATE: 2016
